FAERS Safety Report 20150988 (Version 1)
Quarter: 2021Q4

REPORT INFORMATION
  Report Type: Spontaneous
  Country: US (occurrence: None)
  Receive Date: 20211203
  Receipt Date: 20211203
  Transmission Date: 20220303
  Serious: Yes (Death)
  Sender: FDA-Public Use
  Company Number: None

PATIENT
  Age: 92 Year
  Sex: Female

DRUGS (9)
  1. NORTHERA [Suspect]
     Active Substance: DROXIDOPA
     Indication: Parkinson^s disease
     Dosage: FREQUENCY : 3 TIMES A DAY;?
     Route: 048
     Dates: start: 20210318, end: 20211122
  2. COLACE [Concomitant]
     Active Substance: DOCUSATE SODIUM
  3. DICLOFEN POT [Concomitant]
  4. FLUTICASONE [Concomitant]
  5. IRON [Concomitant]
     Active Substance: IRON
  6. LYRICA [Concomitant]
  7. MULTI VITAMIN [Concomitant]
  8. RYTARY [Concomitant]
     Active Substance: CARBIDOPA\LEVODOPA
  9. TYLENOL [Concomitant]

REACTIONS (1)
  - Death [None]

NARRATIVE: CASE EVENT DATE: 20211122
